FAERS Safety Report 8344431-6 (Version None)
Quarter: 2012Q2

REPORT INFORMATION
  Report Type: 
  Country: None (occurrence: None)
  Receive Date: 20120508
  Receipt Date: 20120423
  Transmission Date: 20120825
  Serious: Yes (Other)
  Sender: FDA-Public Use
  Company Number: US-ROCHE-1062112

PATIENT
  Age: 62 Year
  Sex: Female
  Weight: 60.91 kg

DRUGS (5)
  1. DOXORUBICIN HCL [Suspect]
     Indication: BREAST CANCER
     Dosage: LAST DOSE ADMIN : 15/10/2010
  2. CYCLOPHOSPHAMIDE [Suspect]
     Indication: BREAST CANCER
     Dosage: LAST DOSE ADMIN : 15/10/2010
  3. PACLITAXEL [Suspect]
     Indication: BREAST CANCER
     Dosage: LAST DOSE ADMIN : 28/01/2011
  4. AVASTIN [Suspect]
     Indication: BREAST CANCER
  5. NEULASTA [Suspect]
     Indication: BREAST CANCER
     Dosage: LAST DOSE ADMIN : 16/10/2010

REACTIONS (1)
  - EJECTION FRACTION DECREASED [None]
